FAERS Safety Report 6820726-X (Version None)
Quarter: 2010Q3

REPORT INFORMATION
  Report Type: 
  Country: None (occurrence: None)
  Receive Date: 20100707
  Receipt Date: 20070516
  Transmission Date: 20110219
  Serious: No
  Sender: FDA-Public Use
  Company Number: US-PFIZER INC-2007039793

PATIENT

DRUGS (1)
  1. SERTRALINE [Suspect]
     Dates: start: 20061001

REACTIONS (8)
  - AFFECT LABILITY [None]
  - ANXIETY [None]
  - CRYING [None]
  - DRUG INEFFECTIVE [None]
  - HEADACHE [None]
  - INSOMNIA [None]
  - PANIC ATTACK [None]
  - TACHYPHRENIA [None]
